FAERS Safety Report 5037517-5 (Version None)
Quarter: 2006Q2

REPORT INFORMATION
  Report Type: 
  Country: None (occurrence: None)
  Receive Date: 20060608
  Receipt Date: 20060314
  Transmission Date: 20061013
  Serious: Yes (Other)
  Sender: FDA-Public Use
  Company Number: HQWYE394917MAR06

PATIENT
  Sex: Male

DRUGS (1)
  1. LORATADINE [Suspect]
     Dosage: ORAL
     Route: 048

REACTIONS (1)
  - ABDOMINAL PAIN UPPER [None]
